FAERS Safety Report 25945608 (Version 1)
Quarter: 2025Q4

REPORT INFORMATION
  Report Type: Spontaneous
  Country: US (occurrence: US)
  Receive Date: 20251021
  Receipt Date: 20251021
  Transmission Date: 20260117
  Serious: No
  Sender: VERTEX
  Company Number: US-VERTEX PHARMACEUTICALS-2025-017127

PATIENT
  Age: 70 Year

DRUGS (2)
  1. SUZETRIGINE [Interacting]
     Active Substance: SUZETRIGINE
     Indication: Osteoarthritis
     Dosage: 50 MG SUZETRIGINE
     Route: 048
     Dates: start: 20251004
  2. CLONIDINE [Interacting]
     Active Substance: CLONIDINE
     Indication: Hypertension
     Dosage: UNK
     Route: 065

REACTIONS (4)
  - Blood pressure decreased [Unknown]
  - Visual impairment [Unknown]
  - Drug interaction [Unknown]
  - Off label use [Unknown]

NARRATIVE: CASE EVENT DATE: 20251001
